FAERS Safety Report 10039933 (Version 2)
Quarter: 2014Q2

REPORT INFORMATION
  Report Type: Report from Study
  Country: US (occurrence: US)
  Receive Date: 20140326
  Receipt Date: 20140408
  Transmission Date: 20141212
  Serious: Yes (Hospitalization)
  Sender: FDA-Public Use
  Company Number: US-JNJFOC-20140311695

PATIENT
  Age: 18 Year
  Sex: Female
  Weight: 59.7 kg

DRUGS (2)
  1. REMICADE [Suspect]
     Indication: INFLAMMATORY BOWEL DISEASE
     Route: 042
     Dates: start: 20110518
  2. IRON [Concomitant]
     Route: 065

REACTIONS (2)
  - Volvulus [Recovered/Resolved with Sequelae]
  - Intestinal perforation [Recovered/Resolved]
